FAERS Safety Report 21278889 (Version 1)
Quarter: 2022Q3

REPORT INFORMATION
  Report Type: Spontaneous
  Country: US (occurrence: US)
  Receive Date: 20220901
  Receipt Date: 20220901
  Transmission Date: 20221026
  Serious: No
  Sender: FDA-Public Use
  Company Number: US-SUN PHARMACEUTICAL INDUSTRIES LTD-2022R1-344077

PATIENT
  Age: 30 Year
  Sex: Female
  Weight: 46.712 kg

DRUGS (1)
  1. DOXYCYCLINE [Suspect]
     Active Substance: DOXYCYCLINE
     Indication: Sepsis
     Route: 065

REACTIONS (2)
  - Product use complaint [Unknown]
  - Tongue discomfort [Unknown]
